FAERS Safety Report 16840502 (Version 4)
Quarter: 2020Q1

REPORT INFORMATION
  Report Type: Report from Study
  Country: MX (occurrence: MX)
  Receive Date: 20190923
  Receipt Date: 20200121
  Transmission Date: 20200409
  Serious: Yes (Life-Threatening, Hospitalization)
  Sender: FDA-Public Use
  Company Number: PHHY2019MX218854

PATIENT
  Sex: Female
  Weight: 7.2 kg

DRUGS (1)
  1. TEGRETOL [Suspect]
     Active Substance: CARBAMAZEPINE
     Indication: SEIZURE
     Dosage: UNK
     Route: 064

REACTIONS (3)
  - Foetal exposure during pregnancy [Unknown]
  - Hypoventilation neonatal [Recovering/Resolving]
  - Sepsis [Recovering/Resolving]
